FAERS Safety Report 8861208 (Version 1)
Quarter: 2012Q4

REPORT INFORMATION
  Report Type: 
  Country: IT (occurrence: IT)
  Receive Date: 20121026
  Receipt Date: 20121026
  Transmission Date: 20130627
  Serious: Yes (Hospitalization)
  Sender: FDA-Public Use
  Company Number: IT-009507513-1210ITA007565

PATIENT
  Age: 77 Year
  Sex: Male

DRUGS (4)
  1. DIPROSONE [Suspect]
     Indication: PSORIASIS
     Dosage: 2 mg, qod
     Route: 061
     Dates: start: 19920101, end: 20120401
  2. DIPROSONE [Suspect]
     Indication: PSORIASIS
     Dosage: 2 mg, qod
     Route: 061
     Dates: start: 19920101, end: 20120401
  3. CLOBETASOL [Suspect]
     Indication: PSORIASIS
     Dosage: 2 mg, qod
     Route: 061
     Dates: start: 19920101, end: 20120401
  4. [THERAPY UNSPECIFIED] [Suspect]
     Dosage: UNK
     Route: 061
     Dates: end: 20120401

REACTIONS (5)
  - Cushing^s syndrome [Recovered/Resolved with Sequelae]
  - Diabetes mellitus [Recovered/Resolved]
  - Depression [Recovered/Resolved]
  - Adrenal insufficiency [Recovered/Resolved with Sequelae]
  - Bacterial infection [None]
